FAERS Safety Report 11432903 (Version 5)
Quarter: 2016Q1

REPORT INFORMATION
  Report Type: Spontaneous
  Country: US (occurrence: US)
  Receive Date: 20150828
  Receipt Date: 20160204
  Transmission Date: 20160525
  Serious: Yes (Hospitalization)
  Sender: FDA-Public Use
  Company Number: US-ACTELION PHARMACEUTICALS US, INC.-A-US2014-95618

PATIENT
  Age: 66 Year
  Sex: Female

DRUGS (4)
  1. TYVASO [Concomitant]
     Active Substance: TREPROSTINIL
  2. REMODULIN [Concomitant]
     Active Substance: TREPROSTINIL
  3. TRACLEER [Suspect]
     Active Substance: BOSENTAN
     Indication: PULMONARY HYPERTENSION
     Dosage: UNK
     Route: 048
  4. ADCIRCA [Concomitant]
     Active Substance: TADALAFIL

REACTIONS (13)
  - Back pain [Unknown]
  - Throat irritation [Unknown]
  - Oedema peripheral [Unknown]
  - Abdominal distension [Unknown]
  - Dyspnoea [Unknown]
  - Cough [Unknown]
  - Arthralgia [Unknown]
  - Paranasal sinus discomfort [Unknown]
  - Asthenia [Unknown]
  - Dizziness [Unknown]
  - Dry throat [Unknown]
  - Diarrhoea [Unknown]
  - Eructation [Unknown]
